FAERS Safety Report 5442994-1 (Version None)
Quarter: 2007Q3

REPORT INFORMATION
  Report Type: 
  Country: None (occurrence: None)
  Receive Date: 20070905
  Receipt Date: 20070828
  Transmission Date: 20080115
  Serious: Yes (Other)
  Sender: FDA-Public Use
  Company Number: PHBS2007JP14354

PATIENT
  Age: 41 Year
  Sex: Male

DRUGS (1)
  1. NEORAL [Suspect]
     Indication: BEHCET'S SYNDROME
     Dosage: 170 MG/D
     Route: 048
     Dates: start: 20070301, end: 20070821

REACTIONS (5)
  - BEHCET'S SYNDROME [None]
  - BRAIN STEM SYNDROME [None]
  - CSF TEST ABNORMAL [None]
  - DIPLOPIA [None]
  - DIZZINESS [None]
